FAERS Safety Report 23100601 (Version 1)
Quarter: 2023Q4

REPORT INFORMATION
  Report Type: Spontaneous
  Country: US (occurrence: None)
  Receive Date: 20231020
  Receipt Date: 20231020
  Transmission Date: 20240110
  Serious: Yes (Hospitalization)
  Sender: FDA-Public Use
  Company Number: None

PATIENT
  Age: 69 Year
  Sex: Male

DRUGS (1)
  1. SEMAGLUTIDE [Suspect]
     Active Substance: SEMAGLUTIDE
     Dates: start: 20230215, end: 20230319

REACTIONS (4)
  - Diarrhoea [None]
  - Eosinophilia [None]
  - Leukocytosis [None]
  - Diarrhoea [None]

NARRATIVE: CASE EVENT DATE: 20230319
